FAERS Safety Report 21141541 (Version 1)
Quarter: 2022Q3

REPORT INFORMATION
  Report Type: Spontaneous
  Country: US (occurrence: None)
  Receive Date: 20220727
  Receipt Date: 20220727
  Transmission Date: 20221027
  Serious: Yes (Other)
  Sender: FDA-Public Use
  Company Number: None

PATIENT
  Age: 38 Year
  Sex: Female
  Weight: 87.75 kg

DRUGS (1)
  1. MAGNESIUM CITRATE [Suspect]
     Active Substance: MAGNESIUM CITRATE
     Indication: Constipation
     Dosage: FREQUENCY : AT BEDTIME;?
     Route: 048
     Dates: start: 20220708, end: 20220709

REACTIONS (2)
  - Muscle spasms [None]
  - Haematochezia [None]

NARRATIVE: CASE EVENT DATE: 20220709
